FAERS Safety Report 20226433 (Version 1)
Quarter: 2021Q4

REPORT INFORMATION
  Report Type: Spontaneous
  Country: DE (occurrence: DE)
  Receive Date: 20211224
  Receipt Date: 20211224
  Transmission Date: 20220303
  Serious: Yes (Hospitalization, Other)
  Sender: FDA-Public Use
  Company Number: DE-ADRED-07631-01

PATIENT
  Age: 31 Year
  Sex: Male
  Weight: 118 kg

DRUGS (1)
  1. SERTRALINE HYDROCHLORIDE [Suspect]
     Active Substance: SERTRALINE HYDROCHLORIDE
     Dosage: 100 MG, 1X/DAY
     Route: 048

REACTIONS (3)
  - Haemorrhagic hepatic cyst [Unknown]
  - Abdominal pain upper [Unknown]
  - Abdominal pain [Unknown]
